FAERS Safety Report 8880827 (Version 1)
Quarter: 2012Q4

REPORT INFORMATION
  Report Type: 
  Country: US (occurrence: US)
  Receive Date: 20121101
  Receipt Date: 20121101
  Transmission Date: 20130627
  Serious: No
  Sender: FDA-Public Use
  Company Number: US-VERTEX PHARMACEUTICAL INC.-2012-023795

PATIENT
  Age: 60 Year
  Sex: Male
  Weight: 108.84 kg

DRUGS (4)
  1. VX-950 [Suspect]
     Indication: HEPATITIS C
     Dosage: 750 mg, tid
     Route: 048
  2. RIBAVIRIN [Suspect]
     Indication: HEPATITIS C
     Route: 048
  3. PEGINTERFERON [Suspect]
     Indication: HEPATITIS C
     Route: 058
  4. LOSARTAN [Concomitant]
     Route: 048

REACTIONS (2)
  - Arthralgia [Unknown]
  - Fatigue [Unknown]
